FAERS Safety Report 4364041-5 (Version None)
Quarter: 2004Q2

REPORT INFORMATION
  Report Type: 
  Country: None (occurrence: None)
  Receive Date: 20040520
  Receipt Date: 20040520
  Transmission Date: 20050107
  Serious: Yes (Hospitalization)
  Sender: FDA-Public Use
  Company Number: None

PATIENT
  Age: 59 Year
  Sex: Male
  Weight: 64.1 kg

DRUGS (1)
  1. PROPOXYPHENE/APAP 100/650 [Suspect]
     Indication: PAIN
     Dosage: 1 TABLET 6X /DAY ORAL
     Route: 048
     Dates: start: 20040213, end: 20040216

REACTIONS (4)
  - DRUG TOXICITY [None]
  - HEPATOTOXICITY [None]
  - LIVER FUNCTION TEST ABNORMAL [None]
  - OVERDOSE [None]
